FAERS Safety Report 10578729 (Version 1)
Quarter: 2014Q4

REPORT INFORMATION
  Report Type: Spontaneous
  Country: JP (occurrence: JP)
  Receive Date: 20141112
  Receipt Date: 20141112
  Transmission Date: 20150529
  Serious: Yes (Hospitalization, Other)
  Sender: FDA-Public Use
  Company Number: JP-US-EMD SERONO, INC.-7332925

PATIENT
  Age: 34 Year
  Sex: Female

DRUGS (3)
  1. GONAL-F [Suspect]
     Active Substance: FOLLITROPIN
     Indication: OVULATION INDUCTION
     Route: 058
  2. UNKNOWNDRUG [Suspect]
     Active Substance: UNSPECIFIED INGREDIENT
     Indication: OVARIAN HYPERSTIMULATION SYNDROME
     Route: 065
  3. UNKNOWNDRUG [Suspect]
     Active Substance: UNSPECIFIED INGREDIENT
     Indication: OVARIAN HYPERSTIMULATION SYNDROME
     Route: 048

REACTIONS (2)
  - Ovarian haemorrhage [Unknown]
  - Ovarian hyperstimulation syndrome [Unknown]
